FAERS Safety Report 9982803 (Version 1)
Quarter: 2014Q1

REPORT INFORMATION
  Report Type: Report from Study
  Country: US (occurrence: US)
  Receive Date: 20140307
  Receipt Date: 20140307
  Transmission Date: 20141002
  Serious: No
  Sender: FDA-Public Use
  Company Number: US-ABBVIE-13P-163-1181024-00

PATIENT
  Age: 51 Year
  Sex: Female

DRUGS (11)
  1. HUMIRA [Suspect]
     Indication: ANKYLOSING SPONDYLITIS
     Dates: start: 20131101
  2. ALPRAZOLAM [Concomitant]
     Indication: ANXIETY
  3. CYCLOBENZAPRINE [Concomitant]
     Indication: MUSCLE SPASMS
     Dosage: IN THE EVENING
  4. VITAMIN B12 NOS [Concomitant]
     Indication: PRODUCT USED FOR UNKNOWN INDICATION
  5. SULFAZINE [Concomitant]
     Indication: ANKYLOSING SPONDYLITIS
  6. ACETAMINOPHEN W/HYDROCODONE [Concomitant]
     Indication: PRODUCT USED FOR UNKNOWN INDICATION
     Dosage: 7.5/500 MG
  7. VYVANSE [Concomitant]
     Indication: ATTENTION DEFICIT/HYPERACTIVITY DISORDER
  8. CYMBALTA [Concomitant]
     Indication: DEPRESSION
  9. VITAMIN D3 [Concomitant]
     Indication: PRODUCT USED FOR UNKNOWN INDICATION
  10. OMEPRAZOLE [Concomitant]
     Indication: GASTRIC DISORDER
  11. TRAZODONE [Concomitant]
     Indication: INSOMNIA

REACTIONS (3)
  - Tongue injury [Unknown]
  - Tooth disorder [Unknown]
  - Musculoskeletal stiffness [Not Recovered/Not Resolved]
